FAERS Safety Report 23845078 (Version 1)
Quarter: 2024Q2

REPORT INFORMATION
  Report Type: Spontaneous
  Country: US (occurrence: US)
  Receive Date: 20240511
  Receipt Date: 20240511
  Transmission Date: 20240716
  Serious: No
  Sender: FDA-Public Use
  Company Number: US-CIPLA LTD.-2023US07024

PATIENT

DRUGS (5)
  1. ALBUTEROL [Suspect]
     Active Substance: ALBUTEROL
     Indication: Chronic obstructive pulmonary disease
     Dosage: 360 MCG (4 PUFFS), DAILY
  2. ALBUTEROL [Suspect]
     Active Substance: ALBUTEROL
     Dosage: 360 MCG (4 PUFFS), DAILY
  3. ALBUTEROL [Suspect]
     Active Substance: ALBUTEROL
     Dosage: 6-8 PUFFS, DAILY
     Dates: start: 202310
  4. METFORMIN [Concomitant]
     Active Substance: METFORMIN HYDROCHLORIDE
     Indication: Diabetes mellitus
     Dosage: 500 MILLIGRAM, BID (1 TABLET IN THE MORNING AND 1 TABLET IN THE EVENING)
     Route: 065
     Dates: start: 202308
  5. LEVOTHYROXINE [Concomitant]
     Active Substance: LEVOTHYROXINE\LEVOTHYROXINE SODIUM
     Indication: Thyroid disorder
     Dosage: 0.088 MILLIGRAM, QD (ONE A DAY)
     Route: 065
     Dates: start: 1983

REACTIONS (5)
  - Dyspnoea [Unknown]
  - Intentional product use issue [Unknown]
  - Wrong technique in device usage process [Unknown]
  - Intentional device misuse [Unknown]
  - Device delivery system issue [Unknown]

NARRATIVE: CASE EVENT DATE: 20231001
